FAERS Safety Report 4401150-6 (Version None)
Quarter: 2004Q3

REPORT INFORMATION
  Report Type: 
  Country: None (occurrence: None)
  Receive Date: 20040907
  Receipt Date: 20031118
  Transmission Date: 20050211
  Serious: No
  Sender: FDA-Public Use
  Company Number: US-BRISTOL-MYERS SQUIBB COMPANY-12439618

PATIENT
  Age: 80 Year
  Sex: Female
  Weight: 86 kg

DRUGS (4)
  1. COUMADIN [Suspect]
     Indication: ATRIAL FIBRILLATION
     Dosage: 5 MG: MONDAY, WEDNESDAY, FRIDAY 2.5 MG: SUNDAY
     Route: 048
  2. CARDIZEM [Concomitant]
  3. DIURETIC [Concomitant]
  4. THERAGRAN-M ADVANCED [Concomitant]

REACTIONS (1)
  - INTERNATIONAL NORMALISED RATIO INCREASED [None]
